FAERS Safety Report 20633541 (Version 6)
Quarter: 2022Q3

REPORT INFORMATION
  Report Type: Spontaneous
  Country: FR (occurrence: FR)
  Receive Date: 20220324
  Receipt Date: 20220804
  Transmission Date: 20221027
  Serious: Yes (Congenital Anomaly, Other)
  Sender: FDA-Public Use
  Company Number: None

PATIENT
  Sex: Male
  Weight: 2.01 kg

DRUGS (10)
  1. PANTOPRAZOLE [Suspect]
     Active Substance: PANTOPRAZOLE
     Indication: Product used for unknown indication
     Dosage: 20 MILLIGRAM, QD
     Route: 064
     Dates: start: 20191202, end: 202001
  2. RAMIPRIL [Suspect]
     Active Substance: RAMIPRIL
     Indication: Product used for unknown indication
     Dosage: 4 MILLIGRAM, QD
     Route: 064
     Dates: start: 20191202, end: 202001
  3. ETHAMBUTOL HYDROCHLORIDE [Suspect]
     Active Substance: ETHAMBUTOL HYDROCHLORIDE
     Indication: Mycobacterium avium complex infection
     Dosage: 750 MILLIGRAM, QD
     Route: 064
     Dates: start: 20191202, end: 202002
  4. ETHAMBUTOL HYDROCHLORIDE [Suspect]
     Active Substance: ETHAMBUTOL HYDROCHLORIDE
     Dosage: 350 MILLIGRAM, QD
     Route: 064
  5. CLARITHROMYCIN [Suspect]
     Active Substance: CLARITHROMYCIN
     Indication: Mycobacterium avium complex infection
     Dosage: 500 MILLIGRAM, QD
     Route: 064
     Dates: start: 20191202, end: 202002
  6. TRUVADA [Suspect]
     Active Substance: EMTRICITABINE\TENOFOVIR DISOPROXIL FUMARATE
     Indication: HIV infection
     Dosage: 445 MG/DAY
     Route: 064
     Dates: start: 20191202, end: 20200803
  7. FLUCONAZOLE [Suspect]
     Active Substance: FLUCONAZOLE
     Indication: Neurocryptococcosis
     Dosage: 600 MILLIGRAM, QD
     Route: 064
     Dates: start: 20191202, end: 202001
  8. ATOVAQUONE [Suspect]
     Active Substance: ATOVAQUONE
     Indication: Pneumocystis jirovecii pneumonia
     Dosage: 1500 MILLIGRAM, QD (STRENGTH: 750 MG/5 ML)
     Route: 064
     Dates: start: 20191202, end: 202001
  9. ISENTRESS [Suspect]
     Active Substance: RALTEGRAVIR POTASSIUM
     Indication: HIV infection
     Dosage: 800 MILLIGRAM, QD
     Route: 064
     Dates: start: 20191202, end: 20200803
  10. EMTRICITABINE\TENOFOVIR DISOPROXIL FUMARATE [Suspect]
     Active Substance: EMTRICITABINE\TENOFOVIR DISOPROXIL FUMARATE
     Indication: HIV infection
     Dosage: 445 MILLIGRAM, QD
     Route: 064
     Dates: start: 20191119, end: 20200803

REACTIONS (3)
  - Phalangeal hypoplasia [Not Recovered/Not Resolved]
  - Congenital foot malformation [Not Recovered/Not Resolved]
  - Foetal exposure during pregnancy [Recovered/Resolved]

NARRATIVE: CASE EVENT DATE: 20191202
